FAERS Safety Report 8935440 (Version 1)
Quarter: 2012Q4

REPORT INFORMATION
  Report Type: Spontaneous
  Country: US (occurrence: None)
  Receive Date: 20121128
  Receipt Date: 20121128
  Transmission Date: 20130627
  Serious: Yes (Hospitalization)
  Sender: FDA-Public Use
  Company Number: None

PATIENT
  Age: 70 Year
  Sex: Female
  Weight: 118.9 kg

DRUGS (8)
  1. COUMADIN [Suspect]
     Indication: PULMONARY EMBOLISM
     Dosage: 10 MG MTTHFSS /WEDNESDAY PO
     Route: 048
  2. ASPIRIN [Suspect]
     Indication: PULMONARY EMBOLISM
     Dosage: 81MG DAILY PO
     Route: 048
  3. ASPIRIN [Suspect]
     Indication: CARDIAC VENTRICULAR DISORDER
     Dosage: 81MG DAILY PO
     Route: 048
  4. ASPIRIN [Suspect]
     Indication: TROPONIN INCREASED
     Dosage: 81MG DAILY PO
     Route: 048
  5. DIOVAN [Concomitant]
  6. COREG [Concomitant]
  7. VIT D3 [Concomitant]
  8. VISINE [Concomitant]

REACTIONS (5)
  - Gastric ulcer haemorrhage [None]
  - Haemorrhagic anaemia [None]
  - Oesophageal mass [None]
  - Mass [None]
  - Lipoma [None]
